FAERS Safety Report 6216795-0 (Version None)
Quarter: 2009Q2

REPORT INFORMATION
  Report Type: 
  Country: None (occurrence: None)
  Receive Date: 20090603
  Receipt Date: 20090603
  Transmission Date: 20091009
  Serious: Yes (Hospitalization)
  Sender: FDA-Public Use
  Company Number: None

PATIENT
  Sex: Male
  Weight: 22 kg

DRUGS (1)
  1. REMICADE [Suspect]
     Indication: CROHN'S DISEASE
     Dosage: 100 MG Q 6 WEEKS INTRAVENOUS
     Route: 042
     Dates: start: 20081201, end: 20090406

REACTIONS (6)
  - HEPATOSPLENOMEGALY [None]
  - HISTOPLASMOSIS [None]
  - LUNG NEOPLASM [None]
  - PNEUMOCYSTIS JIROVECI PNEUMONIA [None]
  - PYREXIA [None]
  - TRANSAMINASES INCREASED [None]
